FAERS Safety Report 13903823 (Version 1)
Quarter: 2017Q3

REPORT INFORMATION
  Report Type: Report from Study
  Country: US (occurrence: US)
  Receive Date: 20170824
  Receipt Date: 20170824
  Transmission Date: 20171127
  Serious: Yes (Other)
  Sender: FDA-Public Use
  Company Number: US-GILEAD-2017-0289480

PATIENT
  Age: 32 Year
  Sex: Female

DRUGS (2)
  1. EMTRICITABINE/TENOFOVIR DISOPROXIL FUMARATE [Suspect]
     Active Substance: EMTRICITABINE\TENOFOVIR DISOPROXIL FUMARATE
     Indication: HIV INFECTION
     Dosage: 1 DF, QD
     Route: 048
  2. DOLUTEGRAVIR [Suspect]
     Active Substance: DOLUTEGRAVIR
     Indication: HIV INFECTION
     Dosage: 50 MG, QD
     Route: 048

REACTIONS (5)
  - Maternal exposure during pregnancy [Recovered/Resolved]
  - Placental transfusion syndrome [Recovered/Resolved]
  - Polyhydramnios [Recovered/Resolved]
  - Premature delivery [Recovered/Resolved]
  - Twin pregnancy [Recovered/Resolved]

NARRATIVE: CASE EVENT DATE: 20170205
